FAERS Safety Report 7250983-X (Version None)
Quarter: 2011Q1

REPORT INFORMATION
  Report Type: 
  Country: None (occurrence: None)
  Receive Date: 20110128
  Receipt Date: 20110120
  Transmission Date: 20110831
  Serious: Yes (Life-Threatening, Hospitalization)
  Sender: FDA-Public Use
  Company Number: B0680799A

PATIENT
  Sex: Female
  Weight: 55 kg

DRUGS (1)
  1. AMOXICILLIN + CLAVULANIC AC [Suspect]
     Indication: ACUTE SINUSITIS
     Route: 048
     Dates: start: 20100906, end: 20100906

REACTIONS (12)
  - PRURITUS [None]
  - DIARRHOEA [None]
  - PHARYNGEAL OEDEMA [None]
  - BURNING SENSATION [None]
  - MALAISE [None]
  - GASTROINTESTINAL PAIN [None]
  - VOMITING [None]
  - PAIN [None]
  - NAUSEA [None]
  - ANGIOEDEMA [None]
  - SUFFOCATION FEELING [None]
  - CONVULSION [None]
